FAERS Safety Report 4322208-6 (Version None)
Quarter: 2004Q1

REPORT INFORMATION
  Report Type: 
  Country: None (occurrence: None)
  Receive Date: 20040319
  Receipt Date: 20040310
  Transmission Date: 20041129
  Serious: Yes (Other)
  Sender: FDA-Public Use
  Company Number: L04-USA-01090-01

PATIENT

DRUGS (1)
  1. CITALOPRAM [Suspect]

REACTIONS (3)
  - CONVULSION [None]
  - OVERDOSE [None]
  - SUPRAVENTRICULAR TACHYCARDIA [None]
